FAERS Safety Report 12949071 (Version 1)
Quarter: 2016Q4

REPORT INFORMATION
  Report Type: Spontaneous
  Country: US (occurrence: US)
  Receive Date: 20161116
  Receipt Date: 20161116
  Transmission Date: 20170207
  Serious: Yes (Hospitalization)
  Sender: FDA-Public Use
  Company Number: None

PATIENT
  Age: 46 Year
  Sex: Male

DRUGS (1)
  1. ZIDOVUDINE TAB 300 MG [Suspect]
     Active Substance: ZIDOVUDINE
     Indication: HIV INFECTION

REACTIONS (1)
  - Injury [None]

NARRATIVE: CASE EVENT DATE: 20161108
